FAERS Safety Report 18447267 (Version 3)
Quarter: 2020Q4

REPORT INFORMATION
  Report Type: Spontaneous
  Country: KR (occurrence: KR)
  Receive Date: 20201030
  Receipt Date: 20201119
  Transmission Date: 20210114
  Serious: Yes (Other)
  Sender: FDA-Public Use
  Company Number: KR-REGENERON PHARMACEUTICALS, INC.-2020-85848

PATIENT

DRUGS (3)
  1. EYLEA [Suspect]
     Active Substance: AFLIBERCEPT
     Dosage: UNK UNK, Q8WK
  2. EYLEA [Suspect]
     Active Substance: AFLIBERCEPT
     Dosage: EVERY 10 WEEKS (15 MONTHS AFTER STARTING THE TREATMENT)
  3. EYLEA [Suspect]
     Active Substance: AFLIBERCEPT
     Indication: NEOVASCULAR AGE-RELATED MACULAR DEGENERATION
     Dosage: UNK UNK, Q8WK

REACTIONS (1)
  - Neovascular age-related macular degeneration [Unknown]
